FAERS Safety Report 7212379-6 (Version None)
Quarter: 2011Q1

REPORT INFORMATION
  Report Type: 
  Country: None (occurrence: None)
  Receive Date: 20110106
  Receipt Date: 20101224
  Transmission Date: 20110831
  Serious: Yes (Death)
  Sender: FDA-Public Use
  Company Number: JP-ALLERGAN-0703954US

PATIENT
  Age: 7 Year
  Sex: Male
  Weight: 13 kg

DRUGS (12)
  1. ZONISAMIDE [Concomitant]
     Indication: INFANTILE SPASMS
     Dosage: 140 MG, QD
     Route: 048
     Dates: start: 20040607, end: 20070416
  2. TIZANIDINE HYDROCHLORIDE [Concomitant]
     Indication: SPASTIC PARALYSIS
     Dosage: 1 MG, QD
     Route: 048
     Dates: start: 20000101, end: 20070416
  3. BOTULINUM TOXIN TYPE A [Suspect]
     Indication: TORTICOLLIS
     Dosage: 90 UNITS, SINGLE
     Route: 030
     Dates: start: 20070214, end: 20070214
  4. BOTULINUM TOXIN TYPE A [Suspect]
     Dosage: 90 UNITS, SINGLE
     Route: 030
     Dates: start: 20061108, end: 20061108
  5. MOSAPRIDE CITRATE [Concomitant]
     Indication: GASTROINTESTINAL MOTILITY DISORDER
     Dosage: 2.66 MG, TID
     Route: 048
     Dates: start: 20041004, end: 20070416
  6. DANTROLENE SODIUM [Concomitant]
     Indication: TORTICOLLIS
     Dosage: 8.3 MG, TID
     Route: 048
     Dates: start: 20070305, end: 20070416
  7. VALPROATE SODIUM [Concomitant]
     Indication: INFANTILE SPASMS
     Dosage: 233 MG, TID
     Route: 048
     Dates: start: 20000101, end: 20070416
  8. TRIHEXYPHENIDYL HCL [Concomitant]
     Indication: SPASTIC PARALYSIS
     Dosage: 0.33 MG, TID
     Route: 048
     Dates: start: 20040823, end: 20070416
  9. CHLORDIAZEPOXIDE [Concomitant]
     Indication: TORTICOLLIS
     Dosage: 5 MG, QD
     Route: 048
     Dates: start: 20070205, end: 20070416
  10. LEVOCARNITINE HYDROCHLORIDE [Concomitant]
     Indication: CARNITINE DECREASED
     Dosage: 100 MG, QD
     Route: 048
     Dates: start: 20021122, end: 20070416
  11. DIAZEPAM [Concomitant]
     Indication: SPASTIC PARALYSIS
     Dosage: 1 MG, QD
     Route: 048
     Dates: start: 20000101, end: 20070416
  12. TPN [Concomitant]
     Indication: NUTRITIONAL SUPPORT
     Dosage: 400 ML, TID
     Route: 048
     Dates: start: 20070305, end: 20070416

REACTIONS (1)
  - SUDDEN DEATH [None]
